FAERS Safety Report 5373511-2 (Version None)
Quarter: 2007Q2

REPORT INFORMATION
  Report Type: 
  Country: None (occurrence: None)
  Receive Date: 20070628
  Receipt Date: 20070625
  Transmission Date: 20071010
  Serious: Yes (Disabling)
  Sender: FDA-Public Use
  Company Number: A0659980A

PATIENT
  Age: 51 Year
  Sex: Female

DRUGS (3)
  1. LAMICTAL [Suspect]
     Indication: BIPOLAR DISORDER
     Dosage: 25MG PER DAY
     Route: 048
     Dates: start: 20070530, end: 20070603
  2. TRAZODONE HCL [Concomitant]
  3. ULTRAM [Concomitant]

REACTIONS (7)
  - BRUXISM [None]
  - DIARRHOEA [None]
  - DYSKINESIA [None]
  - NAUSEA [None]
  - NERVOUSNESS [None]
  - SPEECH DISORDER [None]
  - TARDIVE DYSKINESIA [None]
